FAERS Safety Report 7511348-6 (Version None)
Quarter: 2011Q2

REPORT INFORMATION
  Report Type: 
  Country: None (occurrence: None)
  Receive Date: 20110531
  Receipt Date: 20110518
  Transmission Date: 20111010
  Serious: Yes (Other)
  Sender: FDA-Public Use
  Company Number: FR-JNJFOC-20110510355

PATIENT
  Age: 17 Year
  Sex: Male

DRUGS (4)
  1. RISPERDAL CONSTA [Suspect]
     Route: 030
     Dates: start: 20100901
  2. PAROXETINE HCL [Concomitant]
     Indication: DEPRESSION
     Dosage: SINCE 3 MONTHS
     Route: 048
  3. RISPERDAL CONSTA [Suspect]
     Indication: SCHIZOPHRENIA
     Route: 030
  4. VALIUM [Concomitant]
     Indication: ANXIETY
     Dosage: WHEN NEEDED
     Route: 048

REACTIONS (3)
  - GAZE PALSY [None]
  - STARING [None]
  - OFF LABEL USE [None]
